FAERS Safety Report 13638447 (Version 2)
Quarter: 2017Q4

REPORT INFORMATION
  Report Type: Report from Study
  Country: GB (occurrence: GB)
  Receive Date: 20170609
  Receipt Date: 20171222
  Transmission Date: 20180320
  Serious: Yes (Death)
  Sender: FDA-Public Use
  Company Number: GB-VERTEX PHARMACEUTICALS-2017-002997

PATIENT
  Age: 35 Year
  Sex: Male
  Weight: 52 kg

DRUGS (31)
  1. MEROPENEM. [Concomitant]
     Active Substance: MEROPENEM
     Indication: INFECTIVE PULMONARY EXACERBATION OF CYSTIC FIBROSIS
     Route: 042
     Dates: start: 20160817
  2. CIPROFLOXACIN. [Concomitant]
     Active Substance: CIPROFLOXACIN
  3. DORNASE ALFA. [Concomitant]
     Active Substance: DORNASE ALFA
  4. PREDNISOLONE. [Concomitant]
     Active Substance: PREDNISOLONE
  5. THIAMINE. [Concomitant]
     Active Substance: THIAMINE
  6. INDACATEROL [Concomitant]
     Active Substance: INDACATEROL
  7. CALCICHEW D3 [Concomitant]
     Active Substance: CALCIUM\CHOLECALCIFEROL
  8. MENADIOL [Concomitant]
     Active Substance: MENADIOL
  9. DOCUSATE [Concomitant]
     Active Substance: DOCUSATE
  10. LACTULOSE. [Concomitant]
     Active Substance: LACTULOSE
  11. ALPHA-TOCOPHEROL [Concomitant]
     Active Substance: .ALPHA.-TOCOPHEROL
  12. ORKAMBI [Suspect]
     Active Substance: IVACAFTOR\LUMACAFTOR
     Dosage: 4 DOSAGE FORM, QD
     Route: 048
     Dates: start: 20160913, end: 20160922
  13. CREON [Concomitant]
     Active Substance: PANCRELIPASE AMYLASE\PANCRELIPASE LIPASE\PANCRELIPASE PROTEASE
  14. AZITHROMYCIN ANHYDROUS. [Concomitant]
     Active Substance: AZITHROMYCIN ANHYDROUS
  15. IPRATROPIUM [Concomitant]
     Active Substance: IPRATROPIUM
  16. TOBRAMYCIN SULFATE. [Concomitant]
     Active Substance: TOBRAMYCIN SULFATE
     Indication: INFECTIVE PULMONARY EXACERBATION OF CYSTIC FIBROSIS
     Route: 042
  17. ORKAMBI [Suspect]
     Active Substance: IVACAFTOR\LUMACAFTOR
     Indication: CYSTIC FIBROSIS
     Dosage: 2 DOSAGE FORM, BID
     Route: 048
     Dates: start: 20160905, end: 20160912
  18. ERYTHROMYCIN. [Concomitant]
     Active Substance: ERYTHROMYCIN
  19. INSULIN GLARGINE [Concomitant]
     Active Substance: INSULIN GLARGINE
  20. QUETIAPINE FUMARATE. [Concomitant]
     Active Substance: QUETIAPINE FUMARATE
  21. AMINOPHYLLINE HYDRATE [Concomitant]
     Active Substance: AMINOPHYLLINE
     Indication: INFECTIVE PULMONARY EXACERBATION OF CYSTIC FIBROSIS
     Dosage: OVERNIGHT
     Dates: start: 20160817
  22. MEROPENEM. [Concomitant]
     Active Substance: MEROPENEM
     Route: 042
  23. MIRTAZAPINE HYDROCHLORIDE [Concomitant]
     Active Substance: MIRTAZAPINE
  24. PARACETAMOL [Concomitant]
     Active Substance: ACETAMINOPHEN
  25. COLECALCIFEROL [Concomitant]
     Active Substance: CHOLECALCIFEROL
  26. COLOMYCIN                          /00013203/ [Concomitant]
     Active Substance: COLISTIN
  27. TOBRAMYCIN SULPHATE [Concomitant]
     Indication: INFECTIVE PULMONARY EXACERBATION OF CYSTIC FIBROSIS
     Route: 042
     Dates: start: 20160817
  28. AZTREONAM. [Concomitant]
     Active Substance: AZTREONAM
  29. OMEPRAZOLE. [Concomitant]
     Active Substance: OMEPRAZOLE
  30. URSODEOXYCHOLIC ACID [Concomitant]
     Active Substance: URSODIOL
  31. VITAMIN E [Concomitant]
     Active Substance: .ALPHA.-TOCOPHEROL

REACTIONS (9)
  - Acidosis [Not Recovered/Not Resolved]
  - Sputum discoloured [Not Recovered/Not Resolved]
  - Tachycardia [Not Recovered/Not Resolved]
  - Cardiac failure congestive [Fatal]
  - Sputum increased [Not Recovered/Not Resolved]
  - Acute respiratory failure [Fatal]
  - Hypoglycaemia [Recovered/Resolved]
  - Chest discomfort [Not Recovered/Not Resolved]
  - Dyspnoea [Not Recovered/Not Resolved]

NARRATIVE: CASE EVENT DATE: 201609
